FAERS Safety Report 20163820 (Version 2)
Quarter: 2021Q4

REPORT INFORMATION
  Report Type: Spontaneous
  Country: US (occurrence: None)
  Receive Date: 20211209
  Receipt Date: 20211228
  Transmission Date: 20220303
  Serious: No
  Sender: FDA-Public Use
  Company Number: 2021A821208

PATIENT
  Sex: Female
  Weight: 82.6 kg

DRUGS (1)
  1. SYMBICORT [Suspect]
     Active Substance: BUDESONIDE\FORMOTEROL FUMARATE DIHYDRATE
     Indication: Asthma
     Route: 055

REACTIONS (6)
  - COVID-19 [Unknown]
  - Anosmia [Unknown]
  - Aspiration [Unknown]
  - Weight decreased [Unknown]
  - Chest discomfort [Unknown]
  - Cough [Unknown]
